FAERS Safety Report 5070352-0 (Version None)
Quarter: 2006Q3

REPORT INFORMATION
  Report Type: 
  Country: None (occurrence: None)
  Receive Date: 20060731
  Receipt Date: 20060719
  Transmission Date: 20061208
  Serious: Yes (Other)
  Sender: FDA-Public Use
  Company Number: CHNY2006DE02068

PATIENT
  Age: 32 Year
  Sex: Male

DRUGS (1)
  1. PENCICLOVIR [Suspect]
     Indication: HERPES SIMPLEX
     Dosage: 4 APPLICATIONS, TOPICAL
     Route: 061
     Dates: start: 20060628, end: 20060628

REACTIONS (3)
  - HYPOAESTHESIA [None]
  - HYPOAESTHESIA ORAL [None]
  - TREATMENT NONCOMPLIANCE [None]
